FAERS Safety Report 9733034 (Version 1)
Quarter: 2013Q4

REPORT INFORMATION
  Report Type: Spontaneous
  Country: US (occurrence: US)
  Receive Date: 20131204
  Receipt Date: 20131204
  Transmission Date: 20140711
  Serious: No
  Sender: FDA-Public Use
  Company Number: US-GILEAD-2009-0022390

PATIENT
  Sex: Female
  Weight: 78.92 kg

DRUGS (5)
  1. LETAIRIS [Suspect]
     Indication: PULMONARY ARTERIAL HYPERTENSION
     Route: 048
     Dates: start: 20090522
  2. NITRO-DUR PATCH [Concomitant]
  3. PLAVIX [Concomitant]
  4. ASPIRIN [Concomitant]
  5. LAXATIVE [Concomitant]

REACTIONS (4)
  - Pain of skin [Unknown]
  - Infection [Unknown]
  - Local swelling [Unknown]
  - Nasal congestion [Unknown]
